FAERS Safety Report 24366982 (Version 1)
Quarter: 2024Q3

REPORT INFORMATION
  Report Type: Report from Study
  Country: MX (occurrence: MX)
  Receive Date: 20240926
  Receipt Date: 20240926
  Transmission Date: 20241016
  Serious: Yes (Hospitalization, Other)
  Sender: ABBVIE
  Company Number: MX-ABBVIE-5937501

PATIENT
  Sex: Male
  Weight: 106 kg

DRUGS (1)
  1. SKYRIZI [Suspect]
     Active Substance: RISANKIZUMAB-RZAA
     Indication: Psoriasis
     Dosage: FORM STRENGTH: 150 MG
     Route: 058
     Dates: start: 20221210, end: 2024

REACTIONS (2)
  - Gallbladder operation [Unknown]
  - Hepatic neoplasm [Unknown]

NARRATIVE: CASE EVENT DATE: 20240101
